FAERS Safety Report 18923339 (Version 1)
Quarter: 2021Q1

REPORT INFORMATION
  Report Type: Spontaneous
  Country: US (occurrence: US)
  Receive Date: 20210222
  Receipt Date: 20210222
  Transmission Date: 20210420
  Serious: Yes (Death, Life-Threatening)
  Sender: FDA-Public Use
  Company Number: US-COLLEGIUM PHARMACEUTICAL, INC.-2021CGM00137

PATIENT
  Age: 38 Year
  Sex: Female

DRUGS (1)
  1. OXYCODONE [Suspect]
     Active Substance: OXYCODONE
     Route: 065

REACTIONS (4)
  - Foreign body embolism [Not Recovered/Not Resolved]
  - Drug abuse [Fatal]
  - Myocardial infarction [Not Recovered/Not Resolved]
  - Intentional product misuse [Fatal]
